FAERS Safety Report 9655662 (Version 3)
Quarter: 2013Q4

REPORT INFORMATION
  Report Type: Report from Study
  Country: CZ (occurrence: CZ)
  Receive Date: 20131030
  Receipt Date: 20131128
  Transmission Date: 20140711
  Serious: Yes (Other)
  Sender: FDA-Public Use
  Company Number: CZ-BIOGENIDEC-2013BI101973

PATIENT
  Age: 26 Year
  Sex: Female

DRUGS (6)
  1. AVONEX [Suspect]
     Indication: PRODUCT USED FOR UNKNOWN INDICATION
     Route: 030
     Dates: start: 20100620, end: 20110613
  2. EUTHYROX [Concomitant]
     Dates: start: 200712
  3. MIABENE [Concomitant]
  4. VIGANTOL [Concomitant]
  5. HYDROCORTISONE [Concomitant]
  6. HELICID [Concomitant]

REACTIONS (1)
  - Germ cell cancer [Recovered/Resolved]
